FAERS Safety Report 8290515-0 (Version None)
Quarter: 2012Q2

REPORT INFORMATION
  Report Type: 
  Country: None (occurrence: None)
  Receive Date: 20120410
  Receipt Date: 20120410
  Transmission Date: 20120825
  Serious: Yes (Disabling)
  Sender: FDA-Public Use
  Company Number: None

PATIENT
  Sex: Female
  Weight: 60 kg

DRUGS (2)
  1. INDOCYANINE GREEN [Suspect]
     Indication: MACULAR HOLE
     Dates: start: 20111215
  2. INDOCYANINE GREEN [Suspect]
     Indication: SURGICAL PROCEDURE REPEATED
     Dates: start: 20111215

REACTIONS (3)
  - RETINAL DEPIGMENTATION [None]
  - VISUAL FIELD DEFECT [None]
  - TOXICITY TO VARIOUS AGENTS [None]
